FAERS Safety Report 4698968-1 (Version None)
Quarter: 2005Q2

REPORT INFORMATION
  Report Type: 
  Country: None (occurrence: None)
  Receive Date: 20050622
  Receipt Date: 20050622
  Transmission Date: 20051028
  Serious: Yes (Life-Threatening, Hospitalization)
  Sender: FDA-Public Use
  Company Number: None

PATIENT
  Age: 44 Year
  Sex: Female
  Weight: 110.6777 kg

DRUGS (1)
  1. AVELOX [Suspect]
     Dosage: 400 MG ONCE ORAL
     Route: 048
     Dates: start: 20050418, end: 20050418

REACTIONS (1)
  - HYPERSENSITIVITY [None]
